FAERS Safety Report 9789731 (Version 1)
Quarter: 2013Q4

REPORT INFORMATION
  Report Type: Spontaneous
  Country: US (occurrence: US)
  Receive Date: 20131231
  Receipt Date: 20131231
  Transmission Date: 20140711
  Serious: No
  Sender: FDA-Public Use
  Company Number: US-PFIZER INC-2013370034

PATIENT
  Sex: Male

DRUGS (2)
  1. CAVERJECT [Suspect]
     Indication: ERECTILE DYSFUNCTION
     Dosage: 10 UG, UNK
  2. CAVERJECT [Suspect]
     Dosage: 5 UG, UNK

REACTIONS (3)
  - Erection increased [Unknown]
  - Drug effect incomplete [Unknown]
  - Drug ineffective [Unknown]
